FAERS Safety Report 8171300-7 (Version None)
Quarter: 2012Q1

REPORT INFORMATION
  Report Type: 
  Country: None (occurrence: None)
  Receive Date: 20120228
  Receipt Date: 20120217
  Transmission Date: 20120608
  Serious: Yes (Hospitalization, Other)
  Sender: FDA-Public Use
  Company Number: US-MERCK-1107USA01262

PATIENT
  Age: 76 Year
  Sex: Female
  Weight: 53 kg

DRUGS (4)
  1. FOSAMAX [Suspect]
     Route: 048
     Dates: start: 19990727
  2. FOSAMAX [Suspect]
     Indication: OSTEOPENIA
     Route: 048
     Dates: start: 19950101, end: 20080601
  3. FOSAMAX [Suspect]
     Route: 048
  4. ALENDRONATE SODIUM [Suspect]
     Indication: OSTEOPENIA
     Route: 048
     Dates: start: 20080701, end: 20090601

REACTIONS (41)
  - ARTHROPATHY [None]
  - INTESTINAL ISCHAEMIA [None]
  - CALCIUM DEFICIENCY [None]
  - CERVICAL ROOT PAIN [None]
  - ABDOMINAL PAIN UPPER [None]
  - HYPOACUSIS [None]
  - FIBROCYSTIC BREAST DISEASE [None]
  - ANGINA PECTORIS [None]
  - URINARY TRACT INFECTION [None]
  - TOOTH DISORDER [None]
  - FALL [None]
  - CONSTIPATION [None]
  - MENISCUS LESION [None]
  - INNER EAR DISORDER [None]
  - RADIUS FRACTURE [None]
  - VERTIGO POSITIONAL [None]
  - BACK PAIN [None]
  - OSTEOARTHRITIS [None]
  - COLONIC POLYP [None]
  - GRANULOMA [None]
  - ANAEMIA POSTOPERATIVE [None]
  - CATARACT [None]
  - CHEST PAIN [None]
  - INTERVERTEBRAL DISC DEGENERATION [None]
  - TRICUSPID VALVE INCOMPETENCE [None]
  - MUSCULOSKELETAL CHEST PAIN [None]
  - MITRAL VALVE INCOMPETENCE [None]
  - LIPIDS INCREASED [None]
  - HYPERLIPIDAEMIA [None]
  - HYPERCHOLESTEROLAEMIA [None]
  - GASTRIC DISORDER [None]
  - FEMUR FRACTURE [None]
  - ULNA FRACTURE [None]
  - BREAST PAIN [None]
  - BLOOD CHOLESTEROL INCREASED [None]
  - RENAL CYST [None]
  - VITAMIN D DEFICIENCY [None]
  - SMALL INTESTINAL OBSTRUCTION [None]
  - SINUS BRADYCARDIA [None]
  - OSTEOPOROSIS [None]
  - LEUKOPENIA [None]
